FAERS Safety Report 7354522-4 (Version None)
Quarter: 2011Q1

REPORT INFORMATION
  Report Type: 
  Country: None (occurrence: None)
  Receive Date: 20110316
  Receipt Date: 20100916
  Transmission Date: 20110831
  Serious: Yes (Other)
  Sender: FDA-Public Use
  Company Number: US-BAYER-201023174NA

PATIENT
  Sex: Female
  Weight: 52 kg

DRUGS (25)
  1. YAZ [Suspect]
     Indication: PREMENSTRUAL SYNDROME
  2. YAZ [Suspect]
     Indication: MENSTRUAL DISORDER
  3. OXYCODONE HCL AND ACETAMINOPHEN [Concomitant]
     Indication: PAIN
     Dosage: UNK
     Dates: start: 20080528
  4. AZITHROMYCIN [Concomitant]
     Dosage: 250 MG, UNK
     Dates: start: 20080930
  5. IBUPROFEN [Concomitant]
     Dosage: UNK
     Dates: start: 20090101
  6. DICYCLOMINE [Concomitant]
     Dosage: 10 MG, UNK
     Dates: start: 20080920
  7. UNCODEABLE ^UNCLASSIFIABLE^ [Concomitant]
     Dosage: 1 G, UNK
     Dates: start: 20081112
  8. PEPCID [Concomitant]
  9. YASMIN [Suspect]
     Indication: MENSTRUAL DISORDER
  10. CEFZIL [Concomitant]
     Indication: UPPER RESPIRATORY TRACT INFECTION
     Dosage: 250 MG, UNK
  11. UNCODEABLE ^UNCLASSIFIABLE^ [Concomitant]
     Dosage: UNK
     Dates: start: 20090217
  12. NABUMETONE [Concomitant]
     Dosage: UNK
     Dates: start: 20050101
  13. MELOXICAM [Concomitant]
     Dosage: UNK
     Dates: start: 20070101
  14. MUCINEX [Concomitant]
     Indication: UPPER RESPIRATORY TRACT INFECTION
  15. PROTONIX [Concomitant]
  16. HYDROCODONE BITARTRATE AND ACETAMINOPHEN [Concomitant]
     Indication: PAIN
     Dosage: UNK
     Dates: start: 20080708
  17. FLUCONAZOLE [Concomitant]
     Dosage: 150 MG, UNK
     Dates: start: 20090114
  18. RELAFEN [Concomitant]
     Dosage: UNK
     Dates: start: 20050101
  19. METHYLPREDNISOLONE [Concomitant]
     Dosage: UNK
     Dates: start: 20090325
  20. YASMIN [Suspect]
     Indication: PREMENSTRUAL SYNDROME
  21. IMODIUM [Concomitant]
  22. YAZ [Suspect]
     Indication: ORAL CONTRACEPTION
     Dosage: UNK
     Route: 048
     Dates: start: 20030101, end: 20090101
  23. YASMIN [Suspect]
     Indication: ORAL CONTRACEPTION
     Dosage: UNK
     Route: 048
     Dates: start: 20030101, end: 20090101
  24. PREVACID [Concomitant]
     Dosage: 30 MG, UNK
     Dates: start: 20081112
  25. LEVBID [Concomitant]

REACTIONS (7)
  - CHOLECYSTITIS ACUTE [None]
  - EPIGASTRIC DISCOMFORT [None]
  - UPPER RESPIRATORY TRACT INFECTION [None]
  - POST CHOLECYSTECTOMY SYNDROME [None]
  - CHEST PAIN [None]
  - ABDOMINAL PAIN [None]
  - BILIARY COLIC [None]
